FAERS Safety Report 16789190 (Version 1)
Quarter: 2019Q3

REPORT INFORMATION
  Report Type: Spontaneous
  Country: FR (occurrence: FR)
  Receive Date: 20190910
  Receipt Date: 20190910
  Transmission Date: 20191005
  Serious: Yes (Hospitalization)
  Sender: FDA-Public Use
  Company Number: FR-SUN PHARMACEUTICAL INDUSTRIES LTD-2019RR-220275

PATIENT
  Age: 33 Year
  Sex: Male

DRUGS (4)
  1. IBUPROFEN. [Suspect]
     Active Substance: IBUPROFEN
     Indication: TOXICITY TO VARIOUS AGENTS
     Dosage: 1600 MILLIGRAM, UNK
     Route: 048
     Dates: start: 20181119
  2. DOLIPRANE [Suspect]
     Active Substance: ACETAMINOPHEN
     Indication: TOXICITY TO VARIOUS AGENTS
     Dosage: 2 GRAM, UNK
     Route: 048
     Dates: start: 20181119
  3. DALACINE 300 MG, GELULE [Suspect]
     Active Substance: CLINDAMYCIN
     Indication: TOXICITY TO VARIOUS AGENTS
     Dosage: 8 DOSAGE FORM, UNK
     Route: 048
     Dates: start: 20181119
  4. DAFALGAN CODEINE [Suspect]
     Active Substance: ACETAMINOPHEN\CODEINE PHOSPHATE
     Indication: TOXICITY TO VARIOUS AGENTS
     Dosage: 12 DOSAGE FORM, UNK
     Route: 048
     Dates: start: 20181119

REACTIONS (3)
  - Toxicity to various agents [Recovered/Resolved]
  - Abdominal pain upper [Recovered/Resolved]
  - Agitation [Recovered/Resolved]

NARRATIVE: CASE EVENT DATE: 20181119
